FAERS Safety Report 5283123-7 (Version None)
Quarter: 2007Q2

REPORT INFORMATION
  Report Type: 
  Country: None (occurrence: None)
  Receive Date: 20070402
  Receipt Date: 20070323
  Transmission Date: 20071010
  Serious: Yes (Hospitalization)
  Sender: FDA-Public Use
  Company Number: US-ROCHE-432383

PATIENT
  Age: 22 Year
  Sex: Female
  Weight: 86.2 kg

DRUGS (5)
  1. ACCUTANE [Suspect]
     Indication: ACNE
     Route: 048
     Dates: start: 19870615
  2. ACCUTANE [Suspect]
     Dosage: 40 MG DAILY, THEN ADD 40 MG MORE EVERY OTHER DAY.
     Route: 048
     Dates: start: 19940713, end: 19940823
  3. ACCUTANE [Suspect]
     Route: 048
     Dates: start: 19940824, end: 19950615
  4. ACCUTANE [Suspect]
     Route: 048
     Dates: start: 20000101, end: 20000215
  5. ACCUTANE [Suspect]
     Route: 048
     Dates: start: 20000217, end: 20000615

REACTIONS (11)
  - CHAPPED LIPS [None]
  - CHOLELITHIASIS [None]
  - COLITIS [None]
  - COLITIS ULCERATIVE [None]
  - DRY EYE [None]
  - DRY SKIN [None]
  - EMOTIONAL DISTRESS [None]
  - EPISTAXIS [None]
  - INFLAMMATORY BOWEL DISEASE [None]
  - NASAL DRYNESS [None]
  - PROCTITIS [None]
